FAERS Safety Report 5932114-9 (Version None)
Quarter: 2008Q4

REPORT INFORMATION
  Report Type: 
  Country: None (occurrence: None)
  Receive Date: 20081027
  Receipt Date: 20081027
  Transmission Date: 20090506
  Serious: No
  Sender: FDA-Public Use
  Company Number: None

PATIENT
  Age: 49 Year
  Sex: Male
  Weight: 102.9665 kg

DRUGS (2)
  1. BUPROPION HCL [Suspect]
     Indication: BIPOLAR I DISORDER
     Dosage: 300MG PO QAM
     Route: 048
  2. WELLBUTRIN XL [Suspect]

REACTIONS (4)
  - AFFECTIVE DISORDER [None]
  - DYSPHORIA [None]
  - IMPAIRED WORK ABILITY [None]
  - THERAPEUTIC RESPONSE UNEXPECTED WITH DRUG SUBSTITUTION [None]
